FAERS Safety Report 8504729-5 (Version None)
Quarter: 2012Q3

REPORT INFORMATION
  Report Type: 
  Country: None (occurrence: None)
  Receive Date: 20120711
  Receipt Date: 20120626
  Transmission Date: 20120928
  Serious: Yes (Other)
  Sender: FDA-Public Use
  Company Number: CHPA2012US014156

PATIENT
  Age: 50 Year
  Sex: Female

DRUGS (9)
  1. EXCEDRIN EXTRA STRENGTH TABLETS [Suspect]
     Indication: HEADACHE
     Dosage: 1 DF, A DAY
     Route: 048
  2. TOPAMAX [Concomitant]
     Dosage: UNK, UNK
  3. DRUG THERAPY NOS [Concomitant]
     Dosage: UNK, UNK
  4. EXCEDRIN EXTRA STRENGTH TABLETS [Suspect]
     Dosage: 4 TO 6 DF, A DAY
     Route: 048
  5. INDERAL [Concomitant]
     Dosage: UNK, UNK
     Dates: start: 19920101
  6. ELAVIL [Concomitant]
     Dosage: UNK, UNK
  7. ACETAMINOPHEN, ASPIRIN AND CAFFEINE [Concomitant]
     Indication: HEADACHE
     Dosage: UNK, UNK
     Dates: start: 20120601
  8. IBUPROFEN [Concomitant]
     Indication: HEADACHE
     Dosage: UNK, UNK
  9. CALCIUM CHANNEL BLOCKERS [Concomitant]
     Dosage: UNK, UNK

REACTIONS (22)
  - CHEST PAIN [None]
  - GASTROINTESTINAL ULCER [None]
  - FEELING ABNORMAL [None]
  - GASTRITIS [None]
  - SINUSITIS [None]
  - BACK PAIN [None]
  - EYE PAIN [None]
  - MENSTRUATION IRREGULAR [None]
  - DECREASED APPETITE [None]
  - VOMITING [None]
  - BRONCHITIS [None]
  - ALTERED VISUAL DEPTH PERCEPTION [None]
  - BLOOD PRESSURE DECREASED [None]
  - ABDOMINAL DISCOMFORT [None]
  - DIZZINESS [None]
  - NASAL INFLAMMATION [None]
  - MOVEMENT DISORDER [None]
  - UNDERDOSE [None]
  - HEADACHE [None]
  - COMMUNICATION DISORDER [None]
  - REBOUND EFFECT [None]
  - PARAESTHESIA [None]
